FAERS Safety Report 9889463 (Version 2)
Quarter: 2014Q2

REPORT INFORMATION
  Report Type: Report from Study
  Country: JP (occurrence: JP)
  Receive Date: 20140211
  Receipt Date: 20140408
  Transmission Date: 20141212
  Serious: Yes (Other)
  Sender: FDA-Public Use
  Company Number: JP-ABBVIE-14P-087-1199619-00

PATIENT
  Age: 41 Year
  Sex: Female
  Weight: 43.6 kg

DRUGS (4)
  1. LEUPRORELIN DEPOT [Suspect]
     Indication: BREAST CANCER FEMALE
     Dosage: Q3MONTHS
     Route: 058
     Dates: start: 20121011
  2. LEUPLIN [Suspect]
     Indication: BREAST CANCER FEMALE
     Dosage: Q4 WEEKS
     Route: 058
     Dates: start: 20120524, end: 20120524
  3. LEUPLIN [Suspect]
     Route: 058
     Dates: start: 20120719, end: 20120913
  4. NOLVADEX [Concomitant]
     Indication: PRODUCT USED FOR UNKNOWN INDICATION
     Dates: start: 20111027

REACTIONS (3)
  - Rib fracture [Recovered/Resolved]
  - Cough [Recovering/Resolving]
  - Dyspnoea [Recovering/Resolving]
